FAERS Safety Report 4683019-5 (Version None)
Quarter: 2005Q2

REPORT INFORMATION
  Report Type: 
  Country: None (occurrence: None)
  Receive Date: 20050606
  Receipt Date: 20050310
  Transmission Date: 20051028
  Serious: Yes (Hospitalization)
  Sender: FDA-Public Use
  Company Number: US-MERCK-0503USA02376

PATIENT
  Age: 58 Year
  Sex: Female
  Weight: 123 kg

DRUGS (4)
  1. VIOXX [Suspect]
     Indication: ARTHRITIS
     Route: 048
     Dates: start: 20040828, end: 20040917
  2. VITAMINS (UNSPECIFIED) [Concomitant]
     Route: 065
  3. TRICOR [Concomitant]
     Route: 065
  4. COUMADIN [Concomitant]
     Route: 065
     Dates: start: 20030101

REACTIONS (14)
  - APHASIA [None]
  - BLOOD CHOLESTEROL INCREASED [None]
  - CEREBROVASCULAR ACCIDENT [None]
  - DIZZINESS [None]
  - DYSPNOEA [None]
  - EMOTIONAL DISTRESS [None]
  - EYE SWELLING [None]
  - FACE OEDEMA [None]
  - HEADACHE [None]
  - NAUSEA [None]
  - SINUS BRADYCARDIA [None]
  - SWELLING FACE [None]
  - TRANSIENT ISCHAEMIC ATTACK [None]
  - VOMITING [None]
